FAERS Safety Report 9577699 (Version 1)
Quarter: 2013Q4

REPORT INFORMATION
  Report Type: Spontaneous
  Country: US (occurrence: US)
  Receive Date: 20131001
  Receipt Date: 20131001
  Transmission Date: 20140711
  Serious: No
  Sender: FDA-Public Use
  Company Number: US-AMGEN-USASP2013008781

PATIENT
  Age: 35 Year
  Sex: Female
  Weight: 72 kg

DRUGS (4)
  1. ENBREL [Suspect]
     Indication: PRODUCT USED FOR UNKNOWN INDICATION
     Dosage: 50 MG, QWK
     Route: 058
  2. PREDNISONE [Suspect]
     Dosage: UNK
  3. TOPAMAX [Concomitant]
     Dosage: 100 MG, UNK
  4. CLOBETASOL [Concomitant]
     Dosage: 0.05 %, UNK

REACTIONS (3)
  - Night sweats [Recovering/Resolving]
  - Tachycardia [Recovering/Resolving]
  - Localised infection [Recovering/Resolving]
